FAERS Safety Report 5893545-9 (Version None)
Quarter: 2008Q3

REPORT INFORMATION
  Report Type: 
  Country: None (occurrence: None)
  Receive Date: 20080919
  Receipt Date: 20080911
  Transmission Date: 20090109
  Serious: Yes (Hospitalization)
  Sender: FDA-Public Use
  Company Number: 2008AP002041

PATIENT
  Age: 61 Year
  Sex: Male

DRUGS (7)
  1. MIRTAZAPINE [Suspect]
     Indication: DECREASED APPETITE
     Dosage: 15 MG; QD
  2. MIRTAZAPINE [Suspect]
     Indication: FLAT AFFECT
     Dosage: 15 MG; QD
  3. MIRTAZAPINE [Suspect]
     Indication: SLEEP DISORDER
     Dosage: 15 MG; QD
  4. METFORMIN HCL [Concomitant]
  5. GLICLAZIDE (GLICLAZIDE) [Concomitant]
  6. IRBESARTAN [Concomitant]
  7. HYDROCHLOROTHIAZIDE [Concomitant]

REACTIONS (3)
  - BLOOD CORTISOL INCREASED [None]
  - HYPONATRAEMIA [None]
  - SOMNOLENCE [None]
